FAERS Safety Report 21048070 (Version 1)
Quarter: 2022Q3

REPORT INFORMATION
  Report Type: Spontaneous
  Country: US (occurrence: US)
  Receive Date: 20220706
  Receipt Date: 20220706
  Transmission Date: 20221026
  Serious: Yes (Other)
  Sender: FDA-Public Use
  Company Number: US-NALPROPION PHARMACEUTICALS INC.-US-2022CUR022062

PATIENT
  Sex: Female

DRUGS (1)
  1. CONTRAVE [Suspect]
     Active Substance: BUPROPION HYDROCHLORIDE\NALTREXONE HYDROCHLORIDE
     Indication: Product used for unknown indication
     Dosage: STRENGTH 8/90MG, UNKNOWN DOSE AND FREQUENCY
     Route: 065
     Dates: start: 2022

REACTIONS (2)
  - COVID-19 [Unknown]
  - Product quality issue [Unknown]

NARRATIVE: CASE EVENT DATE: 20220601
